FAERS Safety Report 7725955-9 (Version None)
Quarter: 2011Q3

REPORT INFORMATION
  Report Type: 
  Country: None (occurrence: None)
  Receive Date: 20110902
  Receipt Date: 20110822
  Transmission Date: 20111222
  Serious: Yes (Hospitalization, Other)
  Sender: FDA-Public Use
  Company Number: US-ELI_LILLY_AND_COMPANY-US201101001860

PATIENT
  Sex: Female

DRUGS (26)
  1. FORTEO [Suspect]
     Indication: OSTEOPOROSIS
     Dosage: 20 UG, QD
     Route: 058
     Dates: start: 20101028
  2. TENORMIN [Concomitant]
  3. LEVOTHROID [Concomitant]
  4. KLOR-CON [Concomitant]
  5. ZYLOPRIM [Concomitant]
  6. AMBIEN [Concomitant]
  7. FORTEO [Suspect]
     Dosage: 20 UG, QD
     Route: 058
  8. REQUIP [Concomitant]
  9. FORTEO [Suspect]
     Dosage: 20 UG, QD
     Route: 058
  10. CALCIUM CARBONATE [Concomitant]
  11. PRILOSEC [Concomitant]
  12. COUMADIN [Concomitant]
  13. LEXAPRO [Concomitant]
  14. MAG-OX [Concomitant]
  15. ANTISEPTICS [Concomitant]
  16. PREDNISONE [Concomitant]
  17. NOVOLOG [Concomitant]
  18. MS CONTIN [Concomitant]
  19. EXELON [Concomitant]
  20. ROBAXIN [Concomitant]
  21. MIRALAX [Concomitant]
  22. STARLIX [Concomitant]
  23. COLACE [Concomitant]
  24. PRAVACHOL [Concomitant]
  25. LANTUS [Concomitant]
  26. PERCOCET [Concomitant]

REACTIONS (7)
  - INFLUENZA [None]
  - FALL [None]
  - ASTHENIA [None]
  - APHONIA [None]
  - LOWER LIMB FRACTURE [None]
  - BALANCE DISORDER [None]
  - CONTUSION [None]
